FAERS Safety Report 5933578-7 (Version None)
Quarter: 2008Q4

REPORT INFORMATION
  Report Type: 
  Country: None (occurrence: None)
  Receive Date: 20081029
  Receipt Date: 20081020
  Transmission Date: 20090506
  Serious: Yes (Hospitalization)
  Sender: FDA-Public Use
  Company Number: KZ-JNJFOC-20081005067

PATIENT
  Sex: Male
  Weight: 76 kg

DRUGS (3)
  1. HALOPERIDOL [Suspect]
     Indication: HALLUCINATION
     Route: 048
  2. AMENAZINE [Suspect]
     Indication: DRUG USE FOR UNKNOWN INDICATION
     Route: 065
  3. CICLODOL [Suspect]
     Indication: DRUG USE FOR UNKNOWN INDICATION
     Route: 065

REACTIONS (3)
  - CHOLECYSTITIS [None]
  - NEUROLEPTIC MALIGNANT SYNDROME [None]
  - SCHIZOPHRENIA, PARANOID TYPE [None]
